FAERS Safety Report 26099916 (Version 1)
Quarter: 2025Q4

REPORT INFORMATION
  Report Type: Spontaneous
  Country: CN (occurrence: None)
  Receive Date: 20251128
  Receipt Date: 20251128
  Transmission Date: 20260118
  Serious: Yes (Hospitalization)
  Sender: JIANGSU HANSOH PHARMACEUTICAL GROUP CO., LTD.
  Company Number: CN-Hansoh-20252190021904

PATIENT
  Sex: Male

DRUGS (4)
  1. PEMETREXED DISODIUM [Suspect]
     Active Substance: PEMETREXED DISODIUM
     Indication: Lung adenocarcinoma stage IV
     Dosage: 0.715G,EVERY 3 WEEKS
     Route: 041
     Dates: start: 20250808, end: 20251010
  2. CARBOPLATIN [Suspect]
     Active Substance: CARBOPLATIN
     Indication: Lung adenocarcinoma stage IV
     Dosage: 560MG,EVERY 3 WEEKS
     Route: 041
     Dates: start: 20250808, end: 20250808
  3. CARBOPLATIN [Suspect]
     Active Substance: CARBOPLATIN
     Dosage: 472MG,EVERY 3 WEEKS
     Route: 041
     Dates: start: 20250829, end: 20251010
  4. PEMBROLIZUMAB [Suspect]
     Active Substance: PEMBROLIZUMAB
     Indication: Lung adenocarcinoma stage IV
     Dosage: 400 MG, Q6ZHOU
     Route: 041
     Dates: start: 20250808, end: 20250808

REACTIONS (1)
  - Immune-mediated lung disease [Recovering/Resolving]

NARRATIVE: CASE EVENT DATE: 20250911
